FAERS Safety Report 25104726 (Version 1)
Quarter: 2025Q1

REPORT INFORMATION
  Report Type: Spontaneous
  Country: CH (occurrence: CH)
  Receive Date: 20250321
  Receipt Date: 20250321
  Transmission Date: 20250409
  Serious: Yes (Other)
  Sender: IDORSIA PHARMACEUTICALS
  Company Number: CH-IDORSIA-008430-2024-CH

PATIENT
  Age: 34 Year
  Sex: Male

DRUGS (6)
  1. QUVIVIQ [Suspect]
     Active Substance: DARIDOREXANT
     Indication: Insomnia
     Dosage: HALF TABLET OF 50 MG
     Route: 048
     Dates: start: 20240508
  2. QUVIVIQ [Suspect]
     Active Substance: DARIDOREXANT
     Route: 048
     Dates: start: 202405, end: 20240826
  3. QUVIVIQ [Suspect]
     Active Substance: DARIDOREXANT
     Route: 048
     Dates: start: 20240829
  4. QUVIVIQ [Suspect]
     Active Substance: DARIDOREXANT
     Route: 048
     Dates: start: 20240925
  5. QUVIVIQ [Suspect]
     Active Substance: DARIDOREXANT
     Route: 048
     Dates: start: 20240928
  6. QUVIVIQ [Suspect]
     Active Substance: DARIDOREXANT
     Route: 048

REACTIONS (9)
  - Seizure like phenomena [Recovered/Resolved]
  - Headache [Not Recovered/Not Resolved]
  - Nightmare [Recovered/Resolved]
  - Head discomfort [Recovered/Resolved]
  - Feeling cold [Recovered/Resolved]
  - Tremor [Recovered/Resolved]
  - Feeling abnormal [Recovered/Resolved]
  - Wrong technique in product usage process [Unknown]
  - Somnolence [Recovered/Resolved]

NARRATIVE: CASE EVENT DATE: 20240508
